FAERS Safety Report 7922893-3 (Version None)
Quarter: 2011Q4

REPORT INFORMATION
  Report Type: 
  Country: None (occurrence: None)
  Receive Date: 20111117
  Receipt Date: 20110805
  Transmission Date: 20120403
  Serious: No
  Sender: FDA-Public Use
  Company Number: US-ALLERGAN-1110589US

PATIENT
  Age: 50 Year
  Sex: Female

DRUGS (2)
  1. LASTACAFT [Suspect]
     Indication: EYE IRRITATION
     Dosage: 2 GTT, QD
     Route: 047
     Dates: start: 20110509, end: 20110601
  2. LASTACAFT [Suspect]
     Indication: SEASONAL ALLERGY

REACTIONS (6)
  - EYELID EXFOLIATION [None]
  - EYE IRRITATION [None]
  - EYE PRURITUS [None]
  - FOREIGN BODY SENSATION IN EYES [None]
  - EYELID OEDEMA [None]
  - EYE SWELLING [None]
